FAERS Safety Report 10174217 (Version 1)
Quarter: 2014Q2

REPORT INFORMATION
  Report Type: Spontaneous
  Country: US (occurrence: None)
  Receive Date: 20140514
  Receipt Date: 20140514
  Transmission Date: 20141212
  Serious: Yes (Hospitalization, Disabling, Congenital Anomaly)
  Sender: FDA-Public Use
  Company Number: None

PATIENT
  Age: 18 Month
  Sex: Male
  Weight: 24.04 kg

DRUGS (2)
  1. ACCUTANE [Suspect]
     Indication: ACNE
     Dosage: 6 MOS (1993 AND 1996) TAKEN BY MOUTH
     Route: 048
  2. ACCUTANE [Suspect]
     Indication: PROPHYLAXIS
     Dosage: 6 MOS (1993 AND 1996) TAKEN BY MOUTH
     Route: 048

REACTIONS (5)
  - Maternal exposure before pregnancy [None]
  - Encephalopathy [None]
  - Autism [None]
  - Mental impairment [None]
  - Gastrointestinal disorder [None]
